FAERS Safety Report 25797561 (Version 2)
Quarter: 2025Q4

REPORT INFORMATION
  Report Type: Spontaneous
  Country: EU (occurrence: EU)
  Receive Date: 20250912
  Receipt Date: 20251001
  Transmission Date: 20260117
  Serious: Yes (Other)
  Sender: ELI LILLY AND COMPANY
  Company Number: EU-ELI_LILLY_AND_COMPANY-FR202509006816

PATIENT
  Age: 38 Year
  Sex: Female
  Weight: 46 kg

DRUGS (4)
  1. RETEVMO [Suspect]
     Active Substance: SELPERCATINIB
     Indication: Non-small cell lung cancer
     Dosage: UNK UNK, UNKNOWN
     Route: 048
     Dates: start: 20250707, end: 20250807
  2. RETEVMO [Suspect]
     Active Substance: SELPERCATINIB
     Dosage: UNK UNK, UNKNOWN
     Route: 048
     Dates: start: 20250812
  3. ATORVASTATIN [Suspect]
     Active Substance: ATORVASTATIN
     Indication: Blood cholesterol increased
     Dosage: 80 MG
     Route: 065
     Dates: start: 2022, end: 20250915
  4. EZETIMIBE [Concomitant]
     Active Substance: EZETIMIBE
     Indication: Blood cholesterol increased
     Dosage: UNK, UNKNOWN
     Route: 065
     Dates: start: 2022

REACTIONS (2)
  - Hepatic cytolysis [Recovering/Resolving]
  - Nausea [Recovering/Resolving]
